FAERS Safety Report 6526961-2 (Version None)
Quarter: 2010Q1

REPORT INFORMATION
  Report Type: 
  Country: None (occurrence: None)
  Receive Date: 20100105
  Receipt Date: 20091229
  Transmission Date: 20100710
  Serious: No
  Sender: FDA-Public Use
  Company Number: JP-ASTRAZENECA-2009SE32907

PATIENT
  Sex: Male
  Weight: 54 kg

DRUGS (6)
  1. BLOPRESS [Suspect]
     Indication: HYPERTENSION
     Route: 048
     Dates: end: 20091208
  2. BLOPRESS [Suspect]
     Route: 048
     Dates: start: 20051209
  3. CONIEL [Concomitant]
     Indication: HYPERTENSION
     Route: 048
     Dates: start: 20051227, end: 20091208
  4. CONIEL [Concomitant]
     Route: 048
  5. BUFFERIN [Concomitant]
     Indication: CEREBROVASCULAR ACCIDENT PROPHYLAXIS
     Route: 048
     Dates: start: 20060105, end: 20091208
  6. BUFFERIN [Concomitant]
     Route: 048

REACTIONS (1)
  - PHOTODERMATOSIS [None]
